FAERS Safety Report 25023232 (Version 1)
Quarter: 2025Q1

REPORT INFORMATION
  Report Type: Spontaneous
  Country: US (occurrence: None)
  Receive Date: 20250227
  Receipt Date: 20250227
  Transmission Date: 20250408
  Serious: Yes (Other)
  Sender: FDA-CTU
  Company Number: None

PATIENT
  Age: 66 Year
  Sex: Female

DRUGS (2)
  1. XDEMVY [Suspect]
     Active Substance: LOTILANER
     Indication: Demodex blepharitis
     Dosage: FREQUENCY : TWICE A DAY;?
     Route: 031
     Dates: start: 20241212, end: 20250123
  2. XDEMVY [Concomitant]
     Active Substance: LOTILANER
     Dates: start: 20241212, end: 20250123

REACTIONS (2)
  - Swelling face [None]
  - Instillation site swelling [None]

NARRATIVE: CASE EVENT DATE: 20250115
